FAERS Safety Report 9968504 (Version 1)
Quarter: 2014Q1

REPORT INFORMATION
  Report Type: Report from Study
  Country: US (occurrence: US)
  Receive Date: 20140306
  Receipt Date: 20140306
  Transmission Date: 20141002
  Serious: No
  Sender: FDA-Public Use
  Company Number: US-ABBVIE-13P-163-1144485-00

PATIENT
  Age: 59 Year
  Sex: Female

DRUGS (8)
  1. HUMIRA [Suspect]
     Indication: RHEUMATOID ARTHRITIS
     Dosage: ON THURSDAY
     Dates: start: 20130723
  2. LISINOPRIL [Concomitant]
     Indication: BLOOD PRESSURE
     Dates: start: 201303
  3. ARAVA [Concomitant]
     Indication: ARTHRITIS
     Dates: start: 2013
  4. BUSPIRONE [Concomitant]
     Indication: ANXIETY
  5. PRAVASTATIN [Concomitant]
     Indication: CARDIAC DISORDER
     Dates: start: 2010
  6. PRAVASTATIN [Concomitant]
     Indication: BLOOD CHOLESTEROL ABNORMAL
  7. ASPIRIN [Concomitant]
     Indication: CARDIAC DISORDER
     Dates: start: 2010
  8. ASPIRIN [Concomitant]
     Indication: BLOOD CHOLESTEROL ABNORMAL

REACTIONS (2)
  - Injection site pain [Recovered/Resolved]
  - Injection site haemorrhage [Recovered/Resolved]
